FAERS Safety Report 14387964 (Version 2)
Quarter: 2018Q2

REPORT INFORMATION
  Report Type: Spontaneous
  Country: US (occurrence: US)
  Receive Date: 20180115
  Receipt Date: 20180601
  Transmission Date: 20180711
  Serious: Yes (Other)
  Sender: FDA-Public Use
  Company Number: US-SA-2017SA201659

PATIENT
  Age: 56 Year
  Sex: Female
  Weight: 107 kg

DRUGS (11)
  1. ADRIAMYCIN [DOXORUBICIN] [Concomitant]
     Dosage: UNK UNK,UNK
     Route: 065
  2. ATIVAN [Concomitant]
     Active Substance: LORAZEPAM
     Dosage: UNK
     Dates: start: 200604, end: 201709
  3. LEXAPRO [Concomitant]
     Active Substance: ESCITALOPRAM OXALATE
     Dosage: UNK UNK,UNK
     Route: 065
     Dates: start: 200808, end: 200812
  4. PROMETHAZINE [Concomitant]
     Active Substance: PROMETHAZINE\PROMETHAZINE HYDROCHLORIDE
     Dosage: UNK UNK,UNK
     Route: 065
     Dates: start: 200808, end: 200812
  5. AMBIEN [Concomitant]
     Active Substance: ZOLPIDEM TARTRATE
     Dosage: UNK
     Dates: start: 200604
  6. ZOFRAN [ONDANSETRON] [Concomitant]
     Dosage: UNK UNK,UNK
     Route: 065
     Dates: start: 200808, end: 200812
  7. CYTOXAN [Concomitant]
     Active Substance: CYCLOPHOSPHAMIDE
     Dosage: UNK UNK,UNK
     Route: 065
  8. TAXOTERE [Suspect]
     Active Substance: DOCETAXEL
     Indication: BREAST CANCER FEMALE
     Dosage: 133 MG,Q3W
     Route: 051
     Dates: start: 20080723, end: 20080723
  9. DOXYCYCLINE HYDROCHLORIDE [Concomitant]
     Active Substance: DOXYCYCLINE HYDROCHLORIDE
     Dosage: UNK UNK,UNK
     Route: 065
  10. KYTRIL [Concomitant]
     Active Substance: GRANISETRON HYDROCHLORIDE
     Dosage: UNK UNK,UNK
     Route: 065
     Dates: start: 200808, end: 200812
  11. TAXOTERE [Suspect]
     Active Substance: DOCETAXEL
     Dosage: 133 MG,Q3W
     Route: 051
     Dates: start: 20081103, end: 20081103

REACTIONS (2)
  - Psychological trauma [Unknown]
  - Alopecia [Recovering/Resolving]

NARRATIVE: CASE EVENT DATE: 200808
